FAERS Safety Report 11259087 (Version 2)
Quarter: 2015Q3

REPORT INFORMATION
  Report Type: Spontaneous
  Country: US (occurrence: US)
  Receive Date: 20150710
  Receipt Date: 20150714
  Transmission Date: 20151125
  Serious: Yes (Other)
  Sender: FDA-Public Use
  Company Number: PHHY2015US080480

PATIENT
  Sex: Male

DRUGS (4)
  1. MIDODRINE [Suspect]
     Active Substance: MIDODRINE
     Indication: RENAL IMPAIRMENT
     Route: 065
  2. ALBUMIN [Suspect]
     Active Substance: ALBUMIN (HUMAN)
     Indication: RENAL IMPAIRMENT
     Route: 041
  3. CEFTRIAXONE. [Concomitant]
     Active Substance: CEFTRIAXONE
     Indication: INFECTION PROPHYLAXIS
     Route: 065
  4. OCTREOTIDE. [Suspect]
     Active Substance: OCTREOTIDE
     Indication: RENAL IMPAIRMENT
     Route: 065

REACTIONS (2)
  - Renal impairment [Unknown]
  - Off label use [Unknown]
